FAERS Safety Report 6297575-7 (Version None)
Quarter: 2009Q3

REPORT INFORMATION
  Report Type: 
  Country: None (occurrence: None)
  Receive Date: 20090805
  Receipt Date: 20090803
  Transmission Date: 20100115
  Serious: Yes (Life-Threatening)
  Sender: FDA-Public Use
  Company Number: NZ-ASTRAZENECA-2009SE06484

PATIENT
  Age: 20521 Day
  Sex: Male

DRUGS (2)
  1. OMEPRAZOLE [Suspect]
     Route: 048
     Dates: start: 20011030, end: 20011129
  2. CILAZAPRIL [Concomitant]
     Route: 048
     Dates: start: 20010904

REACTIONS (2)
  - ANGIOEDEMA [None]
  - BRONCHOSPASM [None]
